FAERS Safety Report 18956412 (Version 41)
Quarter: 2025Q4

REPORT INFORMATION
  Report Type: Spontaneous
  Country: CA (occurrence: CA)
  Receive Date: 20210302
  Receipt Date: 20251208
  Transmission Date: 20260117
  Serious: Yes (Other)
  Sender: BAUSCH AND LOMB
  Company Number: CA-BAUSCH-BL-2021-006694

PATIENT
  Age: 53 Year
  Sex: Male

DRUGS (292)
  1. DIHYDROERGOTAMINE MESYLATE [Suspect]
     Active Substance: DIHYDROERGOTAMINE MESYLATE
     Indication: Migraine
     Dosage: DIHYDROERGOTAMINE ADMINISTERED - 2TIMES
     Route: 065
  2. DIHYDROERGOTAMINE MESYLATE [Suspect]
     Active Substance: DIHYDROERGOTAMINE MESYLATE
     Dosage: DIHYDROERGOTAMINE MESYLATE (ADMINISTERED 2 TIMES)
     Route: 065
  3. DICLOFENAC SODIUM [Suspect]
     Active Substance: DICLOFENAC SODIUM
     Indication: Migraine
     Dosage: ADMINISTERED - 3 TIMES
     Route: 065
  4. DICLOFENAC SODIUM [Suspect]
     Active Substance: DICLOFENAC SODIUM
     Dosage: DICLOFENAC SODIUM
     Route: 065
  5. DICLOFENAC SODIUM [Suspect]
     Active Substance: DICLOFENAC SODIUM
     Dosage: DICLOFENAC SODIUM (3 ADMINISTRATIONS)
     Route: 065
  6. DICLOFENAC SODIUM [Suspect]
     Active Substance: DICLOFENAC SODIUM
     Dosage: NOT SPECIFIED, DICLOFENAC
     Route: 065
  7. DICLOFENAC POTASSIUM [Suspect]
     Active Substance: DICLOFENAC POTASSIUM
     Indication: Migraine
     Route: 065
  8. DICLOFENAC POTASSIUM [Suspect]
     Active Substance: DICLOFENAC POTASSIUM
     Route: 065
  9. DICLOFENAC POTASSIUM [Suspect]
     Active Substance: DICLOFENAC POTASSIUM
     Route: 065
  10. DICLOFENAC DIETHYLAMINE [Suspect]
     Active Substance: DICLOFENAC DIETHYLAMINE
     Indication: Migraine
     Route: 065
  11. VENLAFAXINE HYDROCHLORIDE [Suspect]
     Active Substance: VENLAFAXINE HYDROCHLORIDE
     Indication: Migraine
     Dosage: VENLAFAXINE
     Route: 065
  12. VENLAFAXINE HYDROCHLORIDE [Suspect]
     Active Substance: VENLAFAXINE HYDROCHLORIDE
     Dosage: VENLAFAXINE HYDROCHLORIDE ( 12 ADMINISTRATIONS)
     Route: 065
  13. VENLAFAXINE HYDROCHLORIDE [Suspect]
     Active Substance: VENLAFAXINE HYDROCHLORIDE
     Dosage: VENLAFAXINE HYDROCHLORIDE (2 ADMINISTRATION)
     Route: 065
  14. VENLAFAXINE HYDROCHLORIDE [Suspect]
     Active Substance: VENLAFAXINE HYDROCHLORIDE
     Dosage: VENLAFAXINE (2 ADMINISTRATIONS)
     Route: 065
  15. VENLAFAXINE HYDROCHLORIDE [Suspect]
     Active Substance: VENLAFAXINE HYDROCHLORIDE
     Dosage: VENLAFAXINE HYDROCHLORIDE
     Route: 065
  16. TRIAMCINOLONE ACETONIDE [Suspect]
     Active Substance: TRIAMCINOLONE ACETONIDE
     Indication: Migraine
     Route: 065
  17. TRIAMCINOLONE ACETONIDE [Suspect]
     Active Substance: TRIAMCINOLONE ACETONIDE
     Dosage: TRIAMCINOLONE ACETONIDE (3 ADMINISTRATIONS)
     Route: 065
  18. TRIAMCINOLONE ACETONIDE [Suspect]
     Active Substance: TRIAMCINOLONE ACETONIDE
     Dosage: NOT SPECIFIED
     Route: 065
  19. TRAMADOL HYDROCHLORIDE [Suspect]
     Active Substance: TRAMADOL HYDROCHLORIDE
     Indication: Migraine
     Dosage: 3 ADMINISTRATIONS
     Route: 065
  20. TRAMADOL HYDROCHLORIDE [Suspect]
     Active Substance: TRAMADOL HYDROCHLORIDE
     Route: 065
  21. ACETAMINOPHEN [Suspect]
     Active Substance: ACETAMINOPHEN
     Indication: Migraine
     Route: 065
  22. ACETAMINOPHEN [Suspect]
     Active Substance: ACETAMINOPHEN
     Dosage: 3 ADMINISTRATION
     Route: 065
  23. ACETAMINOPHEN [Suspect]
     Active Substance: ACETAMINOPHEN
     Dosage: (ADMINISTERED 2 TIMES)
     Route: 065
  24. ACETAMINOPHEN [Suspect]
     Active Substance: ACETAMINOPHEN
     Dosage: 10 ADMINISTRATION
     Route: 065
  25. ACETAMINOPHEN [Suspect]
     Active Substance: ACETAMINOPHEN
     Dosage: NOT SPECIFIED
     Route: 048
  26. ACETAMINOPHEN [Suspect]
     Active Substance: ACETAMINOPHEN
     Dosage: NOT SPECIFIED
     Route: 065
  27. ACETAMINOPHEN [Suspect]
     Active Substance: ACETAMINOPHEN
     Dosage: RAN-ACETAMINOPHEN 8 HOUR ,TABLET (EXTENDED RELEASE)
     Route: 048
  28. ACETAMINOPHEN [Suspect]
     Active Substance: ACETAMINOPHEN
     Route: 065
  29. ACETAMINOPHEN\OXYCODONE HYDROCHLORIDE [Suspect]
     Active Substance: ACETAMINOPHEN\OXYCODONE HYDROCHLORIDE
     Indication: Migraine
     Dosage: ADMINISTERED - 5 TIMES
     Route: 065
  30. ACETAMINOPHEN\OXYCODONE HYDROCHLORIDE [Suspect]
     Active Substance: ACETAMINOPHEN\OXYCODONE HYDROCHLORIDE
     Route: 048
  31. ACETAMINOPHEN\OXYCODONE HYDROCHLORIDE [Suspect]
     Active Substance: ACETAMINOPHEN\OXYCODONE HYDROCHLORIDE
     Dosage: 2 ADMINISTRATIONS
     Route: 065
  32. ACETAMINOPHEN\TRAMADOL [Suspect]
     Active Substance: ACETAMINOPHEN\TRAMADOL
     Indication: Migraine
     Dosage: ACETAMINOPHEN/TRAMADOL (ADMINISTERED 2 TIMES)
     Route: 065
  33. ACETAMINOPHEN\TRAMADOL [Suspect]
     Active Substance: ACETAMINOPHEN\TRAMADOL
     Route: 065
  34. ACETAMINOPHEN\TRAMADOL [Suspect]
     Active Substance: ACETAMINOPHEN\TRAMADOL
     Dosage: ACETAMINOPHEN/TRAMADOL HYDROCHLORIDE (3 ADMINISTRATION)
     Route: 048
  35. ACETAMINOPHEN\TRAMADOL [Suspect]
     Active Substance: ACETAMINOPHEN\TRAMADOL
     Dosage: ACETAMINOPHEN/TRAMADOL HYDROCHLORIDE (ADMINISTERED 2 TIMES)
     Route: 065
  36. ACETAMINOPHEN\TRAMADOL [Suspect]
     Active Substance: ACETAMINOPHEN\TRAMADOL
     Dosage: ACETAMINOPHEN/TRAMADOL
     Route: 065
  37. ACETAMINOPHEN\TRAMADOL [Suspect]
     Active Substance: ACETAMINOPHEN\TRAMADOL
     Dosage: ACETAMINOPHEN/TRAMADOL HYDROCHLORIDE (ADMINISTERED 4 TIMES)
     Route: 065
  38. ACETAMINOPHEN\TRAMADOL [Suspect]
     Active Substance: ACETAMINOPHEN\TRAMADOL
     Dosage: ACETAMINOPHEN/TRAMADOL HYDROCHLORIDE
     Route: 065
  39. AMITRIPTYLINE [Suspect]
     Active Substance: AMITRIPTYLINE
     Indication: Product used for unknown indication
     Dosage: AMITRIPTYLINE (18 ADMINISTRATIONS)
     Route: 065
  40. AMITRIPTYLINE [Suspect]
     Active Substance: AMITRIPTYLINE
     Dosage: AMITRIPTYLINE HYDROCHLORIDE
     Route: 065
  41. AMITRIPTYLINE [Suspect]
     Active Substance: AMITRIPTYLINE
     Dosage: AMITRIPTYLINE HYDROCHLORIDE (17 ADMINISTRATION)
     Route: 065
  42. AMITRIPTYLINE [Suspect]
     Active Substance: AMITRIPTYLINE
     Dosage: AMITRIPTYLINE HYDROCHLORIDE
     Route: 065
  43. AMITRIPTYLINE [Suspect]
     Active Substance: AMITRIPTYLINE
     Dosage: AMITRIPTYLINE
     Route: 065
  44. BOTULINUM TOXIN TYPE A [Suspect]
     Active Substance: BOTULINUM TOXIN TYPE A
     Indication: Product used for unknown indication
     Dosage: POWDER FOR SOLUTION
     Route: 065
  45. BOTULINUM TOXIN TYPE A [Suspect]
     Active Substance: BOTULINUM TOXIN TYPE A
     Route: 065
  46. BOTULINUM TOXIN TYPE A [Suspect]
     Active Substance: BOTULINUM TOXIN TYPE A
     Dosage: POWDER FOR SOLUTION
     Route: 065
  47. BOTULINUM TOXIN TYPE A [Suspect]
     Active Substance: BOTULINUM TOXIN TYPE A
     Route: 065
  48. BOTULINUM TOXIN TYPE A [Suspect]
     Active Substance: BOTULINUM TOXIN TYPE A
     Dosage: POWDER FOR SOLUTION
     Route: 030
  49. BOTULINUM TOXIN TYPE A [Suspect]
     Active Substance: BOTULINUM TOXIN TYPE A
     Route: 065
  50. BOTULINUM TOXIN TYPE A [Suspect]
     Active Substance: BOTULINUM TOXIN TYPE A
     Dosage: ADMINISTERED 2 TIMES
     Route: 030
  51. BOTULINUM TOXIN TYPE A [Suspect]
     Active Substance: BOTULINUM TOXIN TYPE A
     Route: 005
  52. BOTULINUM TOXIN TYPE A [Suspect]
     Active Substance: BOTULINUM TOXIN TYPE A
     Route: 065
  53. BOTULINUM TOXIN TYPE A [Suspect]
     Active Substance: BOTULINUM TOXIN TYPE A
     Dosage: POWDER FOR SOLUTION
     Route: 030
  54. BOTULINUM TOXIN TYPE A [Suspect]
     Active Substance: BOTULINUM TOXIN TYPE A
     Route: 065
  55. BOTULINUM TOXIN TYPE A [Suspect]
     Active Substance: BOTULINUM TOXIN TYPE A
     Route: 065
  56. BOTULINUM TOXIN TYPE A [Suspect]
     Active Substance: BOTULINUM TOXIN TYPE A
     Route: 030
  57. BOTULINUM TOXIN TYPE A [Suspect]
     Active Substance: BOTULINUM TOXIN TYPE A
     Route: 065
  58. BOTULINUM TOXIN TYPE A [Suspect]
     Active Substance: BOTULINUM TOXIN TYPE A
     Dosage: POWDER FOR SOLUTION
     Route: 065
  59. BOTULINUM TOXIN TYPE A [Suspect]
     Active Substance: BOTULINUM TOXIN TYPE A
     Route: 065
  60. CELEBREX [Suspect]
     Active Substance: CELECOXIB
     Indication: Arthritis
     Dosage: ADMINISTERED - 2 TIMES
     Route: 065
  61. CELEBREX [Suspect]
     Active Substance: CELECOXIB
     Route: 030
  62. CELEBREX [Suspect]
     Active Substance: CELECOXIB
     Dosage: ADMINISTERED - 5 TIMES
     Route: 065
  63. CELEBREX [Suspect]
     Active Substance: CELECOXIB
     Dosage: 2 ADMINISTRATIONS
     Route: 065
  64. CODEINE [Suspect]
     Active Substance: CODEINE
     Indication: Migraine
     Dosage: CODEINE
     Route: 048
  65. CODEINE [Suspect]
     Active Substance: CODEINE
     Dosage: ADMINISTERED- 50 TIMES
     Route: 065
  66. CODEINE [Suspect]
     Active Substance: CODEINE
     Dosage: NOT SPECIFIED, CODEINE PHOSPHATE
     Route: 065
  67. CODEINE [Suspect]
     Active Substance: CODEINE
     Dosage: CODEINE (62 ADMINISTRATION)
     Route: 065
  68. CODEINE [Suspect]
     Active Substance: CODEINE
     Dosage: CODEINE CONTIN (EXTENDED RELEASE)
     Route: 048
  69. CODEINE [Suspect]
     Active Substance: CODEINE
     Dosage: CODEINE/CODEINE SULFATE (ADMINISTERED 2 TIMES)
     Route: 048
  70. CODEINE [Suspect]
     Active Substance: CODEINE
     Dosage: CODEINE/CODEINE SULFATE
     Route: 065
  71. CODEINE [Suspect]
     Active Substance: CODEINE
     Dosage: NOT SPECIFIED
     Route: 048
  72. CODEINE [Suspect]
     Active Substance: CODEINE
     Dosage: NOT SPECIFIED
     Route: 065
  73. DEMEROL [Suspect]
     Active Substance: MEPERIDINE HYDROCHLORIDE
     Indication: Migraine
     Dosage: NOT SPECIFIED (ADMINISTERED - 2 TIMES)
     Route: 065
  74. DEMEROL [Suspect]
     Active Substance: MEPERIDINE HYDROCHLORIDE
     Dosage: (60 ADMINISTRATIONS)
     Route: 065
  75. DEMEROL [Suspect]
     Active Substance: MEPERIDINE HYDROCHLORIDE
     Route: 065
  76. ENDOCET [Suspect]
     Active Substance: ACETAMINOPHEN\OXYCODONE HYDROCHLORIDE
     Indication: Migraine
     Route: 065
  77. ENDOCET [Suspect]
     Active Substance: ACETAMINOPHEN\OXYCODONE HYDROCHLORIDE
     Dosage: 2 ADMINISTRATIONS
     Route: 048
  78. ENDOCET [Suspect]
     Active Substance: ACETAMINOPHEN\OXYCODONE HYDROCHLORIDE
     Route: 065
  79. ESOMEPRAZOLE MAGNESIUM [Suspect]
     Active Substance: ESOMEPRAZOLE MAGNESIUM
     Indication: Product used for unknown indication
     Dosage: ESOMEPRAZOLE MAGNESIUM TRIHYDRATE (36 ADMINISTRATION)
     Route: 048
  80. ESOMEPRAZOLE MAGNESIUM [Suspect]
     Active Substance: ESOMEPRAZOLE MAGNESIUM
     Dosage: ESOMEPRAZOLE
     Route: 048
  81. ESOMEPRAZOLE MAGNESIUM [Suspect]
     Active Substance: ESOMEPRAZOLE MAGNESIUM
     Dosage: ESOMEPRAZOLE MAGNESIUM TRIHYDRATE (ADMINISTERED 49 TIMES)
     Route: 048
  82. ESOMEPRAZOLE MAGNESIUM [Suspect]
     Active Substance: ESOMEPRAZOLE MAGNESIUM
     Dosage: ESOMEPRAZOLE MAGNESIUM TRIHYDRATE (31 ADMINISTRATION)
     Route: 048
  83. ESOMEPRAZOLE MAGNESIUM [Suspect]
     Active Substance: ESOMEPRAZOLE MAGNESIUM
     Dosage: ESOMEPRAZOLE SODIUM
     Route: 048
  84. ESOMEPRAZOLE MAGNESIUM [Suspect]
     Active Substance: ESOMEPRAZOLE MAGNESIUM
     Dosage: ESOMEPRAZOLE MAGNESIUM TRIHYDRATE (44 ADMINISTRATION)
     Route: 065
  85. ESOMEPRAZOLE MAGNESIUM [Suspect]
     Active Substance: ESOMEPRAZOLE MAGNESIUM
     Dosage: ESOMEPRAZOLE SODIUM TRIHYDRATE
     Route: 048
  86. ESOMEPRAZOLE MAGNESIUM [Suspect]
     Active Substance: ESOMEPRAZOLE MAGNESIUM
     Dosage: ESOMEPRAZOLE MAGNESIUM TRIHYDRATE (49ADMINISTRATION)
     Route: 065
  87. ESOMEPRAZOLE MAGNESIUM [Suspect]
     Active Substance: ESOMEPRAZOLE MAGNESIUM
     Dosage: ESOMEPRAZOLE (NOT SPECIFIED)
     Route: 065
  88. ESOMEPRAZOLE MAGNESIUM [Suspect]
     Active Substance: ESOMEPRAZOLE MAGNESIUM
     Dosage: ESOMEPRAZOLE MAGNESIUM TRIHYDRATE
     Route: 065
  89. GABAPENTIN [Suspect]
     Active Substance: GABAPENTIN
     Indication: Product used for unknown indication
     Dosage: 3 ADMINISTRATIONS
     Route: 065
  90. GABAPENTIN [Suspect]
     Active Substance: GABAPENTIN
     Dosage: NOT SPECIFIED
     Route: 065
  91. IBUPROFEN [Suspect]
     Active Substance: IBUPROFEN
     Indication: Product used for unknown indication
     Dosage: 3 ADMINISTRATIONS
     Route: 065
  92. IBUPROFEN [Suspect]
     Active Substance: IBUPROFEN
     Route: 065
  93. IBUPROFEN [Suspect]
     Active Substance: IBUPROFEN
     Dosage: IBUPROFEN SUSPENSION
     Route: 065
  94. KETAMINE [Suspect]
     Active Substance: KETAMINE
     Indication: Migraine
     Route: 030
  95. KETAMINE [Suspect]
     Active Substance: KETAMINE
     Dosage: KETAMINE HYDROCHLORIDE (ADMINISTERED 6 TIMES)
     Route: 065
  96. KETAMINE [Suspect]
     Active Substance: KETAMINE
     Dosage: KETAMINE
     Route: 065
  97. KETAMINE [Suspect]
     Active Substance: KETAMINE
     Dosage: NOT SPECIFIED
     Route: 065
  98. MAXALT [Suspect]
     Active Substance: RIZATRIPTAN BENZOATE
     Indication: Migraine
     Dosage: ADMINISTERED - 2 TIMES
     Route: 065
  99. MAXALT [Suspect]
     Active Substance: RIZATRIPTAN BENZOATE
     Route: 065
  100. NAPROXEN [Suspect]
     Active Substance: NAPROXEN
     Indication: Migraine
     Dosage: NOT SPECIFIED
     Route: 048
  101. NAPROXEN [Suspect]
     Active Substance: NAPROXEN
     Dosage: ADMINISTERED 16 TIMES
     Route: 065
  102. NAPROXEN [Suspect]
     Active Substance: NAPROXEN
     Dosage: 16 ADMINISTRATION
     Route: 048
  103. NAPROXEN [Suspect]
     Active Substance: NAPROXEN
     Dosage: NOT SPECIFIED ( 3 ADMINISTRATIONS)
     Route: 065
  104. NORTRIPTYLINE [Suspect]
     Active Substance: NORTRIPTYLINE
     Indication: Product used for unknown indication
     Route: 065
  105. NORTRIPTYLINE [Suspect]
     Active Substance: NORTRIPTYLINE
     Dosage: NORTRIPTYLINE HYDROCHLORIDE
     Route: 065
  106. NORTRIPTYLINE [Suspect]
     Active Substance: NORTRIPTYLINE
     Dosage: NORTRIPTYLINE HYDROCHLORIDE
     Route: 030
  107. NORTRIPTYLINE [Suspect]
     Active Substance: NORTRIPTYLINE
     Dosage: NORTRIPTYLINE HYDROCHLORIDE
     Route: 065
  108. ONDANSETRON HYDROCHLORIDE [Suspect]
     Active Substance: ONDANSETRON HYDROCHLORIDE
     Indication: Migraine
     Dosage: ONDANSETRON HYDROCHLORIDE (10 ADMINISTRATION)
     Route: 065
  109. ONDANSETRON HYDROCHLORIDE [Suspect]
     Active Substance: ONDANSETRON HYDROCHLORIDE
     Dosage: ONDANSETRON HYDROCHLORIDE
     Route: 043
  110. ONDANSETRON HYDROCHLORIDE [Suspect]
     Active Substance: ONDANSETRON HYDROCHLORIDE
     Dosage: NOT SPECIFIED 2 ADMINISTRATION
     Route: 048
  111. ONDANSETRON HYDROCHLORIDE [Suspect]
     Active Substance: ONDANSETRON HYDROCHLORIDE
     Dosage: ONDANSETRON HYDROCHLORIDE (ADMINISTERED- 2 TIMES)
     Route: 065
  112. ONDANSETRON HYDROCHLORIDE [Suspect]
     Active Substance: ONDANSETRON HYDROCHLORIDE
     Dosage: ONDANSETRON HYDROCHLORIDE
     Route: 048
  113. ONDANSETRON HYDROCHLORIDE [Suspect]
     Active Substance: ONDANSETRON HYDROCHLORIDE
     Dosage: ONDANSETRON HYDROCHLORIDE
     Route: 065
  114. ONDANSETRON HYDROCHLORIDE [Suspect]
     Active Substance: ONDANSETRON HYDROCHLORIDE
     Dosage: ONDANSETRON
     Route: 065
  115. PROPRANOLOL [Suspect]
     Active Substance: PROPRANOLOL HYDROCHLORIDE
     Indication: Migraine
     Dosage: PROPRANOLOL (49 ADMINISTRATION)
     Route: 065
  116. PROPRANOLOL [Suspect]
     Active Substance: PROPRANOLOL HYDROCHLORIDE
     Dosage: PROPRANOLOL HYDROCHLORIDE
     Route: 042
  117. PROPRANOLOL [Suspect]
     Active Substance: PROPRANOLOL HYDROCHLORIDE
     Dosage: PROPRANOLOL HYDROCHLORIDE (ADMINISTERED 3 TIMES)
     Route: 065
  118. PROPRANOLOL [Suspect]
     Active Substance: PROPRANOLOL HYDROCHLORIDE
     Dosage: PROPRANOLOL HYDROCHLORIDE (4 ADMINISTRATION)
     Route: 065
  119. PROPRANOLOL [Suspect]
     Active Substance: PROPRANOLOL HYDROCHLORIDE
     Dosage: NOT SPECIFIED
     Route: 065
  120. TENORETIC [Suspect]
     Active Substance: ATENOLOL\CHLORTHALIDONE
     Indication: Product used for unknown indication
     Dosage: 24 ADMINISTRATION
     Route: 048
  121. TENORETIC [Suspect]
     Active Substance: ATENOLOL\CHLORTHALIDONE
     Route: 048
  122. TENORETIC [Suspect]
     Active Substance: ATENOLOL\CHLORTHALIDONE
     Dosage: 24 ADMINISTRATION
     Route: 048
  123. TENORETIC [Suspect]
     Active Substance: ATENOLOL\CHLORTHALIDONE
     Dosage: ONCE
     Route: 048
  124. TENORETIC [Suspect]
     Active Substance: ATENOLOL\CHLORTHALIDONE
     Route: 048
  125. TENORETIC [Suspect]
     Active Substance: ATENOLOL\CHLORTHALIDONE
     Dosage: 24ADMINISTRATION
     Route: 048
  126. TENORETIC [Suspect]
     Active Substance: ATENOLOL\CHLORTHALIDONE
     Dosage: ADMINISTERED - 18 TIMES
     Route: 065
  127. TENORETIC [Suspect]
     Active Substance: ATENOLOL\CHLORTHALIDONE
     Dosage: ADMINISTERED 13 TIMES
     Route: 065
  128. TENORETIC [Suspect]
     Active Substance: ATENOLOL\CHLORTHALIDONE
     Dosage: ADMINISTERED - 53 TIMES
     Route: 065
  129. TENORETIC [Suspect]
     Active Substance: ATENOLOL\CHLORTHALIDONE
     Dosage: ADMINISTERED 13 TIMES
     Route: 065
  130. TENORETIC [Suspect]
     Active Substance: ATENOLOL\CHLORTHALIDONE
     Dosage: ADMINISTERED 12 TIMES
     Route: 048
  131. TENORETIC [Suspect]
     Active Substance: ATENOLOL\CHLORTHALIDONE
     Dosage: ADMINISTERED 39 TIMES
     Route: 065
  132. TENORETIC [Suspect]
     Active Substance: ATENOLOL\CHLORTHALIDONE
     Route: 065
  133. DULOXETINE [Suspect]
     Active Substance: DULOXETINE
     Indication: Migraine
     Route: 065
  134. DULOXETINE [Suspect]
     Active Substance: DULOXETINE
     Dosage: ADMINISTERED - 34 TIMES
     Route: 065
  135. DULOXETINE [Suspect]
     Active Substance: DULOXETINE
     Dosage: DELAYED RELEASE
     Route: 065
  136. DULOXETINE [Suspect]
     Active Substance: DULOXETINE
     Dosage: CAPSULE, DELAYED RELEASE
     Route: 065
  137. DULOXETINE [Suspect]
     Active Substance: DULOXETINE
     Route: 065
  138. DULOXETINE [Suspect]
     Active Substance: DULOXETINE
     Route: 065
  139. DULOXETINE [Suspect]
     Active Substance: DULOXETINE
     Route: 065
  140. DULOXETINE [Suspect]
     Active Substance: DULOXETINE
     Route: 065
  141. DULOXETINE [Suspect]
     Active Substance: DULOXETINE
     Dosage: NOT SPECIFIED
     Route: 065
  142. DULOXETINE [Suspect]
     Active Substance: DULOXETINE
     Dosage: 8 ADMINISTRATIONS
     Route: 065
  143. DULOXETINE [Suspect]
     Active Substance: DULOXETINE
     Route: 065
  144. TOPAMAX [Suspect]
     Active Substance: TOPIRAMATE
     Indication: Migraine
     Route: 048
  145. TOPAMAX [Suspect]
     Active Substance: TOPIRAMATE
     Route: 065
  146. TOPAMAX [Suspect]
     Active Substance: TOPIRAMATE
     Dosage: ADMINISTERED 2 TIMES
     Route: 065
  147. TOPAMAX [Suspect]
     Active Substance: TOPIRAMATE
     Dosage: NOT SPECIFIED
     Route: 065
  148. TOPIRAMATE [Suspect]
     Active Substance: TOPIRAMATE
     Indication: Migraine
     Route: 048
  149. TOPIRAMATE [Suspect]
     Active Substance: TOPIRAMATE
     Route: 065
  150. TOPIRAMATE [Suspect]
     Active Substance: TOPIRAMATE
     Dosage: 12 ADMINISTRATIONS
     Route: 065
  151. TOPIRAMATE [Suspect]
     Active Substance: TOPIRAMATE
     Dosage: NOT SPECIFIED (2 ADMINISTRATIONS)
     Route: 065
  152. TORADOL [Suspect]
     Active Substance: KETOROLAC TROMETHAMINE
     Indication: Migraine
     Dosage: 3 ADMINISTRATIONS
     Route: 065
  153. TORADOL [Suspect]
     Active Substance: KETOROLAC TROMETHAMINE
     Dosage: 3 ADMINISTRATION
     Route: 065
  154. TORADOL [Suspect]
     Active Substance: KETOROLAC TROMETHAMINE
     Route: 065
  155. TORADOL [Suspect]
     Active Substance: KETOROLAC TROMETHAMINE
     Dosage: NOT SPECIFIED
     Route: 065
  156. TORADOL [Suspect]
     Active Substance: KETOROLAC TROMETHAMINE
     Dosage: NOT SPECIFIED
     Route: 065
  157. ACETAMINOPHEN\TRAMADOL [Suspect]
     Active Substance: ACETAMINOPHEN\TRAMADOL
     Indication: Migraine
     Route: 065
  158. ACETAMINOPHEN\TRAMADOL [Suspect]
     Active Substance: ACETAMINOPHEN\TRAMADOL
     Dosage: ADMINISTERED 2 TIMES
     Route: 065
  159. ACETAMINOPHEN\TRAMADOL [Suspect]
     Active Substance: ACETAMINOPHEN\TRAMADOL
     Dosage: (2 ADMINISTRATIONS)
     Route: 065
  160. TYLENOL [Suspect]
     Active Substance: ACETAMINOPHEN
     Indication: Migraine
     Dosage: ADMINISTERED 4 TIMES
     Route: 065
  161. TYLENOL [Suspect]
     Active Substance: ACETAMINOPHEN
     Route: 048
  162. TYLENOL [Suspect]
     Active Substance: ACETAMINOPHEN
     Dosage: NOT SPECIFIED
     Route: 065
  163. ZOFRAN [Suspect]
     Active Substance: ONDANSETRON HYDROCHLORIDE
     Indication: Migraine
     Dosage: ( 3 ADMINISTRATIONS)
     Route: 065
  164. ZOFRAN [Suspect]
     Active Substance: ONDANSETRON HYDROCHLORIDE
     Dosage: NOT SPECIFIED
     Route: 065
  165. ZOFRAN [Suspect]
     Active Substance: ONDANSETRON HYDROCHLORIDE
     Dosage: NOT SPECIFIED
     Route: 065
  166. AXERT [Suspect]
     Active Substance: ALMOTRIPTAN MALATE
     Indication: Product used for unknown indication
     Route: 065
  167. DULOXETINE [Suspect]
     Active Substance: DULOXETINE
     Indication: Migraine
     Route: 065
  168. DULOXETINE [Suspect]
     Active Substance: DULOXETINE
     Dosage: DULOXETINE HYDROCHLORIDE
     Route: 048
  169. DULOXETINE [Suspect]
     Active Substance: DULOXETINE
     Dosage: DULOXETINE HYDROCHLORIDE
     Route: 065
  170. DULOXETINE [Suspect]
     Active Substance: DULOXETINE
     Dosage: DULOXETINE HYDROCHLORIDE, (ADMINISTERED 35 TIMES)
     Route: 065
  171. DULOXETINE [Suspect]
     Active Substance: DULOXETINE
     Route: 065
  172. DULOXETINE [Suspect]
     Active Substance: DULOXETINE
     Dosage: DULOXETINE HYDROCHLORIDE
     Route: 065
  173. DULOXETINE [Suspect]
     Active Substance: DULOXETINE
     Dosage: DULOXETINE HYDROCHLORIDE (ADMINISTERED 99 TIMES)
     Route: 065
  174. DULOXETINE [Suspect]
     Active Substance: DULOXETINE
     Dosage: DULOXETINE HYDROCHLORIDE (34 ADMINISTRATION)
     Route: 065
  175. DULOXETINE [Suspect]
     Active Substance: DULOXETINE
     Route: 065
  176. DULOXETINE [Suspect]
     Active Substance: DULOXETINE
     Route: 065
  177. DULOXETINE [Suspect]
     Active Substance: DULOXETINE
     Dosage: CAPSULE, DELAYED RELEASE
     Route: 065
  178. DULOXETINE [Suspect]
     Active Substance: DULOXETINE
     Dosage: DULOXETINE HYDROCHLORIDE, (ADMINISTERED 42 TIMES)
     Route: 065
  179. DULOXETINE [Suspect]
     Active Substance: DULOXETINE
     Dosage: DULOXETINE HYDROCHLORIDE
     Route: 065
  180. DULOXETINE [Suspect]
     Active Substance: DULOXETINE
     Dosage: DULOXETINE HYDROCHLORIDE (DELAYED RELEASE)
     Route: 065
  181. DULOXETINE [Suspect]
     Active Substance: DULOXETINE
     Dosage: DULOXETINE HYDROCHLORIDE, CAPSULE, DELAYED RELEASE
     Route: 065
  182. EFFEXOR [Suspect]
     Active Substance: VENLAFAXINE HYDROCHLORIDE
     Indication: Migraine
     Dosage: EFFEXOR
     Route: 065
  183. EFFEXOR [Suspect]
     Active Substance: VENLAFAXINE HYDROCHLORIDE
     Dosage: EFFEXOR XR, CAPSULE DELAYED RELEASE
     Route: 065
  184. MORPHINE [Suspect]
     Active Substance: MORPHINE
     Indication: Migraine
     Dosage: MORPHINE SULPHATE (ADMINISTERED 4 TIMES)
     Route: 065
  185. MORPHINE [Suspect]
     Active Substance: MORPHINE
     Dosage: MORPHINE SULFATE (ADMINISTERED - 3 TIMES)
     Route: 065
  186. MORPHINE [Suspect]
     Active Substance: MORPHINE
     Dosage: NOT SPECIFIED, MORPHINE
     Route: 065
  187. MORPHINE [Suspect]
     Active Substance: MORPHINE
     Dosage: NOT SPECIFIED, MORPHINE SULFATE
     Route: 065
  188. VIMOVO [Suspect]
     Active Substance: ESOMEPRAZOLE MAGNESIUM\NAPROXEN
     Indication: Product used for unknown indication
     Dosage: TABLET (DELAYED AND IMMEDIATE RELEASE)
     Route: 048
  189. VIMOVO [Suspect]
     Active Substance: ESOMEPRAZOLE MAGNESIUM\NAPROXEN
     Dosage: TABLET (DELAYED AND IMMEDIATE RELEASE)
     Route: 065
  190. VOLTAREN [Suspect]
     Active Substance: DICLOFENAC SODIUM
     Indication: Migraine
     Dosage: NOT SPECIFIED
     Route: 065
  191. VOLTAREN [Suspect]
     Active Substance: DICLOFENAC SODIUM
     Indication: Arthralgia
     Dosage: NOT SPECIFIED
     Route: 065
  192. VOLTAREN [Suspect]
     Active Substance: DICLOFENAC SODIUM
     Dosage: NOT SPECIFIED
     Route: 065
  193. VOLTAREN [Suspect]
     Active Substance: DICLOFENAC SODIUM
     Dosage: NOT SPECIFIED
     Route: 065
  194. DICLOFENAC DIETHYLAMINE [Suspect]
     Active Substance: DICLOFENAC DIETHYLAMINE
     Indication: Migraine
     Dosage: 4 ADMINISTRATIONS
     Route: 065
  195. DICLOFENAC DIETHYLAMINE [Suspect]
     Active Substance: DICLOFENAC DIETHYLAMINE
     Dosage: VOLTAREN EMULGEL JOINT PAIN REGULAR STRENGTH
     Route: 065
  196. DICLOFENAC DIETHYLAMINE [Suspect]
     Active Substance: DICLOFENAC DIETHYLAMINE
     Route: 065
  197. ACETAMINOPHEN\CODEINE PHOSPHATE [Suspect]
     Active Substance: ACETAMINOPHEN\CODEINE PHOSPHATE
     Indication: Migraine
     Dosage: ACETAMINOPHEN AND COD.PHOS.ELX, USP160 MG-8MG/5ML
     Route: 065
  198. ACETAMINOPHEN\CODEINE PHOSPHATE [Suspect]
     Active Substance: ACETAMINOPHEN\CODEINE PHOSPHATE
     Dosage: ADMINISTERED 3 TIMES
     Route: 065
  199. ACETAMINOPHEN\CODEINE PHOSPHATE [Suspect]
     Active Substance: ACETAMINOPHEN\CODEINE PHOSPHATE
     Dosage: ACETAMINOPHEN AND COD.PHOS.ELX, USP160 MG-8MG/5ML
     Route: 065
  200. ACETAMINOPHEN\CHLORPHENIRAMINE\CODEINE [Suspect]
     Active Substance: ACETAMINOPHEN\CHLORPHENIRAMINE\CODEINE
     Indication: Migraine
     Dosage: CHLORPHENAMINE MALEATE;PARACETAMOL
     Route: 065
  201. ESOMEPRAZOLE MAGNESIUM\NAPROXEN [Suspect]
     Active Substance: ESOMEPRAZOLE MAGNESIUM\NAPROXEN
     Indication: Product used for unknown indication
     Route: 065
  202. ESOMEPRAZOLE MAGNESIUM\NAPROXEN [Suspect]
     Active Substance: ESOMEPRAZOLE MAGNESIUM\NAPROXEN
     Dosage: ESOMEPRAZOLE MAGNESIUM TRIHYDRATE;NAPROXEN
     Route: 048
  203. ESOMEPRAZOLE MAGNESIUM\NAPROXEN [Suspect]
     Active Substance: ESOMEPRAZOLE MAGNESIUM\NAPROXEN
     Dosage: ESOMEPRAZOLE MAGNESIUM TRIHYDRATE; NAPROXEN (60 ADMINISTRATION)
     Route: 048
  204. ESOMEPRAZOLE MAGNESIUM\NAPROXEN [Suspect]
     Active Substance: ESOMEPRAZOLE MAGNESIUM\NAPROXEN
     Dosage: ESOMEPRAZOLE MAGNESIUM TRIHYDRATE;NAPROXEN (ADMINISTERED 49 TIMES)
     Route: 065
  205. ESOMEPRAZOLE MAGNESIUM\NAPROXEN [Suspect]
     Active Substance: ESOMEPRAZOLE MAGNESIUM\NAPROXEN
     Dosage: ESOMEPRAZOLE MAGNESIUM TRIHYDRATE;NAPROXEN (ADMINISTERED 17 TIMES
     Route: 050
  206. TRIAMCINOLONE ACETONIDE [Suspect]
     Active Substance: TRIAMCINOLONE ACETONIDE
     Indication: Migraine
     Route: 065
  207. TRIAMCINOLONE ACETONIDE [Suspect]
     Active Substance: TRIAMCINOLONE ACETONIDE
     Route: 065
  208. HYDROMORPHONE [Suspect]
     Active Substance: HYDROMORPHONE
     Indication: Migraine
     Dosage: NOT SPECIFIED, HYDROMORPHONE (ADMINISTERED 2 TIMES)
     Route: 065
  209. HYDROMORPHONE [Suspect]
     Active Substance: HYDROMORPHONE
     Dosage: HYDROMORPHONE HYDROCHLORIDE
     Route: 065
  210. HYDROMORPHONE [Suspect]
     Active Substance: HYDROMORPHONE
     Dosage: HYDROMORPHONE HYDROCHLORIDE
     Route: 065
  211. HYDROMORPHONE [Suspect]
     Active Substance: HYDROMORPHONE
     Dosage: ADMINISTERED 2 TIMES
     Route: 065
  212. HYDROMORPHONE [Suspect]
     Active Substance: HYDROMORPHONE
     Dosage: HYDROMORPHONE
     Route: 065
  213. BOTOX [Suspect]
     Active Substance: ONABOTULINUMTOXINA
     Indication: Product used for unknown indication
     Dosage: 47 ADMINISTRATION
     Route: 065
  214. BOTOX [Suspect]
     Active Substance: ONABOTULINUMTOXINA
     Dosage: POWDER FOR SOLUTION INTRAMUSCULAR
     Route: 065
  215. BOTOX [Suspect]
     Active Substance: ONABOTULINUMTOXINA
     Dosage: POWDER FOR SOLUTION (ADMINISTERED - 2 TIMES)
     Route: 030
  216. BOTOX [Suspect]
     Active Substance: ONABOTULINUMTOXINA
     Dosage: ADMINISTERED - 3 TIMES
     Route: 065
  217. BOTOX [Suspect]
     Active Substance: ONABOTULINUMTOXINA
     Dosage: 5 ADMINISTRATION
     Route: 065
  218. BOTOX [Suspect]
     Active Substance: ONABOTULINUMTOXINA
     Dosage: ADMINISTERED - 2 TIMES
     Route: 030
  219. BOTOX [Suspect]
     Active Substance: ONABOTULINUMTOXINA
     Dosage: ADMINISTRATIONS - 140
     Route: 065
  220. BOTOX [Suspect]
     Active Substance: ONABOTULINUMTOXINA
     Dosage: ADMINISTERED- 44 TIMES
     Route: 065
  221. BOTOX [Suspect]
     Active Substance: ONABOTULINUMTOXINA
     Dosage: ADMINISTERED- 6 TIMES
     Route: 065
  222. BOTOX [Suspect]
     Active Substance: ONABOTULINUMTOXINA
     Route: 065
  223. BOTOX [Suspect]
     Active Substance: ONABOTULINUMTOXINA
     Dosage: ADMINISTRATIONS - 3
     Route: 065
  224. BOTOX [Suspect]
     Active Substance: ONABOTULINUMTOXINA
     Dosage: POWDER FOR SOLUTION INTRAMUSCULAR
     Route: 065
  225. BOTOX [Suspect]
     Active Substance: ONABOTULINUMTOXINA
     Route: 030
  226. BOTOX [Suspect]
     Active Substance: ONABOTULINUMTOXINA
     Dosage: POWDER FOR SOLUTION INTRAMUSCULAR
     Route: 030
  227. BOTOX [Suspect]
     Active Substance: ONABOTULINUMTOXINA
     Dosage: POWDER FOR SOLUTION INTRAMUSCULAR
     Route: 030
  228. ACETAMINOPHEN\CAFFEINE\CHLORPHENIRAMINE\PHENYLPROPANOLAMINE [Suspect]
     Active Substance: ACETAMINOPHEN\CAFFEINE\CHLORPHENIRAMINE\PHENYLPROPANOLAMINE
     Indication: Product used for unknown indication
     Dosage: ADMINISTERED - 22 TIMES
     Route: 065
  229. ALMOTRIPTAN [Suspect]
     Active Substance: ALMOTRIPTAN
     Indication: Migraine
     Dosage: ALMOTRIPTAN MALATE (49 ADMINISTRATION)
     Route: 065
  230. ALMOTRIPTAN [Suspect]
     Active Substance: ALMOTRIPTAN
     Dosage: ALMOTRIPTAN
     Route: 065
  231. ALMOTRIPTAN [Suspect]
     Active Substance: ALMOTRIPTAN
     Dosage: ALMOTRIPTAN MALATE (ADMINISTERED 52 TIMES)
     Route: 065
  232. ALMOTRIPTAN [Suspect]
     Active Substance: ALMOTRIPTAN
     Dosage: ALMOTRIPTAN (ADMINISTERED - 18 TIMES)
     Route: 065
  233. ALMOTRIPTAN [Suspect]
     Active Substance: ALMOTRIPTAN
     Dosage: ALMOTRIPTAN MALATE (ADMINISTERED - 47 TIMES)
     Route: 065
  234. DICLOFENAC [Suspect]
     Active Substance: DICLOFENAC
     Indication: Migraine
     Route: 065
  235. DICLOFENAC [Suspect]
     Active Substance: DICLOFENAC
     Dosage: SANDOZ-DICLOFENAC
     Route: 065
  236. DICLOFENAC [Suspect]
     Active Substance: DICLOFENAC
     Dosage: SANDOZ-DICLOFENAC
     Route: 065
  237. ATENOLOL\CHLORTHALIDONE [Suspect]
     Active Substance: ATENOLOL\CHLORTHALIDONE
     Indication: Product used for unknown indication
     Dosage: NTP/ATENOLOL/CHLORTHALIDONE
     Route: 065
  238. TRIAMCINOLONE ACETONIDE [Suspect]
     Active Substance: TRIAMCINOLONE ACETONIDE
     Indication: Migraine
     Route: 014
  239. TRIAMCINOLONE ACETONIDE [Suspect]
     Active Substance: TRIAMCINOLONE ACETONIDE
     Route: 065
  240. TRIAMCINOLONE ACETONIDE [Suspect]
     Active Substance: TRIAMCINOLONE ACETONIDE
     Route: 065
  241. ELAVIL [Suspect]
     Active Substance: AMITRIPTYLINE HYDROCHLORIDE
     Indication: Product used for unknown indication
     Route: 065
  242. ELAVIL [Suspect]
     Active Substance: AMITRIPTYLINE HYDROCHLORIDE
     Route: 065
  243. KETOROLAC [Suspect]
     Active Substance: KETOROLAC TROMETHAMINE
     Indication: Migraine
     Route: 065
  244. DIHYDROERGOTAMINE [Suspect]
     Active Substance: DIHYDROERGOTAMINE
     Indication: Migraine
     Route: 065
  245. DIHYDROERGOTAMINE [Suspect]
     Active Substance: DIHYDROERGOTAMINE
     Route: 065
  246. DIHYDROERGOTAMINE [Suspect]
     Active Substance: DIHYDROERGOTAMINE
     Dosage: DIHYDROERGOTAMINE MESYLATE
     Route: 065
  247. CELECOXIB [Suspect]
     Active Substance: CELECOXIB
     Indication: Product used for unknown indication
     Route: 065
  248. CELECOXIB [Suspect]
     Active Substance: CELECOXIB
     Route: 030
  249. CELECOXIB [Suspect]
     Active Substance: CELECOXIB
     Route: 065
  250. RIZATRIPTAN BENZOATE [Suspect]
     Active Substance: RIZATRIPTAN BENZOATE
     Indication: Product used for unknown indication
     Dosage: 2 ADMINISTRATION
     Route: 065
  251. OXYCODONE HYDROCHLORIDE [Suspect]
     Active Substance: OXYCODONE HYDROCHLORIDE
     Indication: Migraine
     Route: 048
  252. OXYCODONE HYDROCHLORIDE [Suspect]
     Active Substance: OXYCODONE HYDROCHLORIDE
     Dosage: NOT SPECIFIED
     Route: 065
  253. ADVIL [Suspect]
     Active Substance: IBUPROFEN
     Indication: Product used for unknown indication
     Route: 065
  254. ADVIL [Suspect]
     Active Substance: IBUPROFEN
     Dosage: NIGHTTIME LIQUIGELS
     Route: 065
  255. ADVIL [Suspect]
     Active Substance: IBUPROFEN
     Dosage: NOT SPECIFIED
     Route: 065
  256. ADVIL [Suspect]
     Active Substance: IBUPROFEN
     Dosage: ADVIL CAPLETS, 2 ADMINISTRATIONS
     Route: 065
  257. NEXIUM [Suspect]
     Active Substance: ESOMEPRAZOLE MAGNESIUM
     Indication: Product used for unknown indication
     Dosage: 2 ADMINISTRATIONS
     Route: 048
  258. IODINE [Suspect]
     Active Substance: IODINE
     Indication: Migraine
     Route: 065
  259. TRAMADOL HYDROCHLORIDE [Suspect]
     Active Substance: TRAMADOL HYDROCHLORIDE
     Indication: Migraine
     Dosage: 2 ADMINISTRATIONS
     Route: 065
  260. TRAMADOL HYDROCHLORIDE [Suspect]
     Active Substance: TRAMADOL HYDROCHLORIDE
     Dosage: 2 ADMINISTRATIONS
     Route: 048
  261. ONDANSETRON [Suspect]
     Active Substance: ONDANSETRON
     Indication: Migraine
     Route: 065
  262. ONDANSETRON [Suspect]
     Active Substance: ONDANSETRON
     Route: 048
  263. VENLAFAXINE HYDROCHLORIDE [Suspect]
     Active Substance: VENLAFAXINE HYDROCHLORIDE
     Indication: Migraine
     Dosage: CAPSULE,?EXTENDED RELEASE
     Route: 065
  264. VENLAFAXINE HYDROCHLORIDE [Suspect]
     Active Substance: VENLAFAXINE HYDROCHLORIDE
     Route: 065
  265. VENLAFAXINE HYDROCHLORIDE [Suspect]
     Active Substance: VENLAFAXINE HYDROCHLORIDE
     Route: 065
  266. VENLAFAXINE HYDROCHLORIDE [Suspect]
     Active Substance: VENLAFAXINE HYDROCHLORIDE
     Route: 065
  267. PANADOL [Suspect]
     Active Substance: ACETAMINOPHEN
     Indication: Migraine
     Route: 065
  268. ESOMEPRAZOLE MAGNESIUM [Suspect]
     Active Substance: ESOMEPRAZOLE MAGNESIUM
     Indication: Product used for unknown indication
     Route: 048
  269. ESOMEPRAZOLE MAGNESIUM [Suspect]
     Active Substance: ESOMEPRAZOLE MAGNESIUM
     Dosage: 49 TIMES ADMINISTERED
     Route: 048
  270. ESOMEPRAZOLE MAGNESIUM [Suspect]
     Active Substance: ESOMEPRAZOLE MAGNESIUM
     Dosage: 37 TIMES ADMINISTERED
     Route: 048
  271. OXYCODONE AND ACETAMINOPHEN [Suspect]
     Active Substance: ACETAMINOPHEN\OXYCODONE HYDROCHLORIDE
     Indication: Migraine
     Route: 065
  272. OXYCODONE AND ACETAMINOPHEN [Suspect]
     Active Substance: ACETAMINOPHEN\OXYCODONE HYDROCHLORIDE
     Route: 065
  273. TOPIRAMATE [Suspect]
     Active Substance: TOPIRAMATE
     Indication: Migraine
     Route: 065
  274. TOPIRAMATE [Suspect]
     Active Substance: TOPIRAMATE
     Route: 065
  275. TOPIRAMATE [Suspect]
     Active Substance: TOPIRAMATE
     Route: 065
  276. TOPIRAMATE [Suspect]
     Active Substance: TOPIRAMATE
     Route: 048
  277. TOPIRAMATE [Suspect]
     Active Substance: TOPIRAMATE
     Route: 065
  278. TRIAMCINOLONE ACETONIDE\ZINC OXIDE [Suspect]
     Active Substance: TRIAMCINOLONE ACETONIDE\ZINC OXIDE
     Indication: Migraine
     Route: 065
  279. ACETAMINOPHEN, CAFFEINE AND DIHYDROCODEINE BITARTRATE [Suspect]
     Active Substance: ACETAMINOPHEN\CAFFEINE\DIHYDROCODEINE BITARTRATE
     Indication: Migraine
     Dosage: 15 TIMES ADMINISTERED
     Route: 065
  280. CHLORPHENIRAMINE MALEATE [Suspect]
     Active Substance: CHLORPHENIRAMINE MALEATE
     Indication: Migraine
     Route: 065
  281. DIPHENHYDRAMINE HYDROCHLORIDE\IBUPROFEN [Suspect]
     Active Substance: DIPHENHYDRAMINE HYDROCHLORIDE\IBUPROFEN
     Indication: Product used for unknown indication
     Route: 065
  282. ESOMEPRAZOLE [Suspect]
     Active Substance: ESOMEPRAZOLE
     Indication: Product used for unknown indication
     Dosage: 25 TIMES AMINISTERED
     Route: 048
  283. ESOMEPRAZOLE [Suspect]
     Active Substance: ESOMEPRAZOLE
     Dosage: ESOMEPRAZOLE SODIUM
     Route: 048
  284. ESOMEPRAZOLE [Suspect]
     Active Substance: ESOMEPRAZOLE
     Dosage: 24 TIMES AMINISTERED
     Route: 048
  285. ESOMEPRAZOLE [Suspect]
     Active Substance: ESOMEPRAZOLE
     Dosage: 87 TIMES AMINISTERED
     Route: 048
  286. ESOMEPRAZOLE MAGNESIUM\NAPROXEN [Suspect]
     Active Substance: ESOMEPRAZOLE MAGNESIUM\NAPROXEN
     Indication: Product used for unknown indication
     Dosage: 69 TIMES ADMINISTERED ESOMEPRAZOLE/NAPROXEN
     Route: 048
  287. ESOMEPRAZOLE MAGNESIUM\NAPROXEN [Suspect]
     Active Substance: ESOMEPRAZOLE MAGNESIUM\NAPROXEN
     Dosage: 18 TIMES ADMINISTERED
     Route: 048
  288. ESOMEPRAZOLE MAGNESIUM\NAPROXEN [Suspect]
     Active Substance: ESOMEPRAZOLE MAGNESIUM\NAPROXEN
     Dosage: ESOMEPRAZOLE MAGNESIUM TRIHYDRATE
     Route: 048
  289. ESOMEPRAZOLE MAGNESIUM\NAPROXEN [Suspect]
     Active Substance: ESOMEPRAZOLE MAGNESIUM\NAPROXEN
     Dosage: ESOMEPRAZOLE MAGNESIUM TRIHYDRATE
     Route: 065
  290. ESOMEPRAZOLE MAGNESIUM\NAPROXEN [Suspect]
     Active Substance: ESOMEPRAZOLE MAGNESIUM\NAPROXEN
     Dosage: NOT SPECIFIED ESOMEPRAZOLE
     Route: 048
  291. TRIACETIN [Suspect]
     Active Substance: TRIACETIN
     Indication: Migraine
     Route: 065
  292. CHLORPHENIRAMINE MALEATE [Suspect]
     Active Substance: CHLORPHENIRAMINE MALEATE
     Indication: Product used for unknown indication
     Route: 065

REACTIONS (9)
  - Nephrolithiasis [Unknown]
  - Sedation [Unknown]
  - Nausea [Unknown]
  - Nightmare [Unknown]
  - Hyperhidrosis [Unknown]
  - Drug ineffective [Unknown]
  - Product use in unapproved indication [Unknown]
  - Off label use [Unknown]
  - Product used for unknown indication [Unknown]
